FAERS Safety Report 20498756 (Version 2)
Quarter: 2022Q1

REPORT INFORMATION
  Report Type: Spontaneous
  Country: US (occurrence: US)
  Receive Date: 20220222
  Receipt Date: 20220322
  Transmission Date: 20220423
  Serious: No
  Sender: FDA-Public Use
  Company Number: US-JNJFOC-20220236397

PATIENT
  Age: 70 Year
  Sex: Male
  Weight: 90.346 kg

DRUGS (6)
  1. DARZALEX [Suspect]
     Active Substance: DARATUMUMAB
     Indication: Plasma cell myeloma
     Dosage: 3 DARATUMUMAB 400 MG VIALS
     Route: 065
     Dates: start: 20220111, end: 20220315
  2. DARZALEX [Suspect]
     Active Substance: DARATUMUMAB
     Dosage: 3 DARATUMUMAB 100 MG VIALS
     Route: 065
     Dates: start: 20220111, end: 20220315
  3. DARZALEX [Suspect]
     Active Substance: DARATUMUMAB
     Dosage: 3 DARATUMUMAB 100 MG VIALS
     Route: 065
     Dates: start: 20220111, end: 20220315
  4. DARZALEX [Suspect]
     Active Substance: DARATUMUMAB
     Dosage: 3 DARATUMUMAB 400 MG VIALS
     Route: 065
     Dates: start: 20220111, end: 20220315
  5. DARZALEX [Suspect]
     Active Substance: DARATUMUMAB
     Dosage: 3 DARATUMUMAB 400 MG VIALS
     Route: 065
     Dates: start: 20220111, end: 20220315
  6. DARZALEX [Suspect]
     Active Substance: DARATUMUMAB
     Dosage: 3 DARATUMUMAB 400 MG VIALS
     Route: 065
     Dates: start: 20220111, end: 20220315

REACTIONS (2)
  - Platelet count decreased [Unknown]
  - Gastrointestinal disorder [Unknown]
